FAERS Safety Report 13735843 (Version 3)
Quarter: 2017Q3

REPORT INFORMATION
  Report Type: Spontaneous
  Country: US (occurrence: US)
  Receive Date: 20170710
  Receipt Date: 20170726
  Transmission Date: 20171127
  Serious: Yes (Other)
  Sender: FDA-Public Use
  Company Number: US-AMGEN-USASP2017101754

PATIENT
  Age: 77 Year
  Sex: Female

DRUGS (6)
  1. PREDNISONE. [Suspect]
     Active Substance: PREDNISONE
     Indication: HEADACHE
     Dosage: UNK
     Route: 065
  2. ENBREL [Suspect]
     Active Substance: ETANERCEPT
     Indication: RHEUMATOID ARTHRITIS
     Dosage: UNK
     Route: 065
     Dates: start: 2001, end: 2014
  3. HUMIRA [Suspect]
     Active Substance: ADALIMUMAB
     Indication: PRODUCT USED FOR UNKNOWN INDICATION
     Dosage: UNK
     Route: 065
  4. METHOTREXATE. [Concomitant]
     Active Substance: METHOTREXATE
     Indication: RHEUMATOID ARTHRITIS
     Dosage: UNK
     Dates: start: 2000
  5. ACTEMRA [Suspect]
     Active Substance: TOCILIZUMAB
     Indication: RHEUMATOID ARTHRITIS
     Dosage: UNK
     Route: 065
     Dates: start: 2014, end: 2015
  6. TYLENOL WITH CODEIN #4 [Concomitant]
     Indication: PAIN

REACTIONS (13)
  - Hernia [Unknown]
  - Diverticulum [Unknown]
  - Loss of personal independence in daily activities [Unknown]
  - Impaired quality of life [Unknown]
  - Myopathy [Unknown]
  - Neutrophilia [Unknown]
  - Asthenia [Unknown]
  - Drug ineffective [Unknown]
  - Headache [Unknown]
  - Rheumatoid arthritis [Not Recovered/Not Resolved]
  - Rectal haemorrhage [Unknown]
  - Constipation [Unknown]
  - Dysphonia [Unknown]

NARRATIVE: CASE EVENT DATE: 201703
